FAERS Safety Report 19918598 (Version 1)
Quarter: 2021Q4

REPORT INFORMATION
  Report Type: Report from Study
  Country: DK (occurrence: DK)
  Receive Date: 20211004
  Receipt Date: 20211004
  Transmission Date: 20220303
  Serious: Yes (Hospitalization)
  Sender: FDA-Public Use
  Company Number: DK-ALXN-A202100838

PATIENT
  Age: 73 Year
  Sex: Female
  Weight: 177 kg

DRUGS (15)
  1. PLACEBO [Suspect]
     Active Substance: UNSPECIFIED INGREDIENT
     Indication: Myasthenia gravis
     Dosage: UNK
     Route: 042
     Dates: start: 20200609
  2. RAVULIZUMAB [Suspect]
     Active Substance: RAVULIZUMAB
     Indication: Myasthenia gravis
     Dosage: UNK
     Route: 042
     Dates: start: 20201210
  3. RAVULIZUMAB [Suspect]
     Active Substance: RAVULIZUMAB
     Dosage: UNK
     Route: 042
     Dates: start: 20201222
  4. ACETAMINOPHEN [Concomitant]
     Active Substance: ACETAMINOPHEN
     Indication: Pain prophylaxis
     Dosage: 500 MG, PRN
     Route: 048
     Dates: start: 20110405
  5. ALBUTEROL [Concomitant]
     Active Substance: ALBUTEROL
     Indication: Asthma prophylaxis
     Dosage: 0.1 MG, PRN
     Route: 055
     Dates: start: 20161229
  6. AZATHIOPRINE SODIUM [Concomitant]
     Active Substance: AZATHIOPRINE SODIUM
     Indication: Myasthenia gravis
     Dosage: 250 MG, QD
     Route: 048
     Dates: start: 20170215
  7. MESTINON [Concomitant]
     Active Substance: PYRIDOSTIGMINE BROMIDE
     Indication: Myasthenia gravis
     Dosage: 120 MG, Q3H
     Route: 048
     Dates: start: 20170217
  8. FURIX [Concomitant]
     Indication: Prophylaxis
     Dosage: 40 MG, BID
     Route: 048
     Dates: start: 20170307, end: 20210116
  9. FURIX [Concomitant]
     Dosage: 20 MG, BID
     Route: 065
     Dates: start: 20210117
  10. XARELTO [Concomitant]
     Active Substance: RIVAROXABAN
     Indication: Prophylaxis
     Dosage: 20 MG, QD
     Route: 048
     Dates: start: 20170316
  11. CITALOPRAM [Concomitant]
     Active Substance: CITALOPRAM HYDROBROMIDE
     Indication: Prophylaxis
     Dosage: 40 MG, QD
     Route: 048
     Dates: start: 20170501, end: 20210116
  12. SERETIDE [Concomitant]
     Active Substance: FLUTICASONE PROPIONATE\SALMETEROL XINAFOATE
     Indication: Prophylaxis
     Dosage: 25+250, ?G, BID
     Route: 055
     Dates: start: 20190103
  13. CANTHARIDIN [Concomitant]
     Active Substance: CANTHARIDIN
     Indication: Supplementation therapy
     Dosage: 10 UT, TID
     Route: 048
     Dates: start: 20200616
  14. PIVMECILLINAM HYDROCHLORIDE [Concomitant]
     Active Substance: PIVMECILLINAM HYDROCHLORIDE
     Indication: Urinary tract infection
     Dosage: 400 MG, TID
     Route: 048
     Dates: start: 20201212, end: 20201218
  15. SULFASALAZINE [Concomitant]
     Active Substance: SULFASALAZINE
     Indication: Product used for unknown indication
     Dosage: UNK
     Route: 065
     Dates: end: 20210116

REACTIONS (1)
  - Erysipelas [Recovered/Resolved]

NARRATIVE: CASE EVENT DATE: 20210116
